FAERS Safety Report 11883555 (Version 1)
Quarter: 2015Q4

REPORT INFORMATION
  Report Type: Spontaneous
  Country: CH (occurrence: CH)
  Receive Date: 20151231
  Receipt Date: 20151231
  Transmission Date: 20160305
  Serious: Yes (Life-Threatening, Hospitalization)
  Sender: FDA-Public Use
  Company Number: PHHY2015CH170845

PATIENT
  Age: 6 Year
  Sex: Female
  Weight: 27 kg

DRUGS (3)
  1. TEGRETOL [Suspect]
     Active Substance: CARBAMAZEPINE
     Indication: EPILEPSY
     Dosage: 160 MG, BID
     Route: 048
     Dates: end: 20151209
  2. PETINIMID [Suspect]
     Active Substance: ETHOSUXIMIDE
     Dosage: 500 MG, QD
     Route: 048
     Dates: start: 20150912
  3. PETINIMID [Suspect]
     Active Substance: ETHOSUXIMIDE
     Indication: EPILEPSY
     Dosage: 500 MG, UNK
     Route: 048
     Dates: start: 201508, end: 20151209

REACTIONS (5)
  - Antiphospholipid syndrome [Not Recovered/Not Resolved]
  - Arterial thrombosis [Recovering/Resolving]
  - Ischaemic stroke [Not Recovered/Not Resolved]
  - Nasopharyngitis [None]
  - Systemic lupus erythematosus [Not Recovered/Not Resolved]

NARRATIVE: CASE EVENT DATE: 20151208
